FAERS Safety Report 8144533-3 (Version None)
Quarter: 2012Q1

REPORT INFORMATION
  Report Type: 
  Country: None (occurrence: None)
  Receive Date: 20120217
  Receipt Date: 20120207
  Transmission Date: 20120608
  Serious: Yes (Other)
  Sender: FDA-Public Use
  Company Number: IT-BRISTOL-MYERS SQUIBB COMPANY-16389512

PATIENT
  Sex: Female

DRUGS (2)
  1. RITONAVIR [Suspect]
  2. ATAZANAVIR [Suspect]

REACTIONS (2)
  - PREGNANCY [None]
  - ABORTION INDUCED [None]
